FAERS Safety Report 15966687 (Version 2)
Quarter: 2019Q1

REPORT INFORMATION
  Report Type: Spontaneous
  Country: US (occurrence: US)
  Receive Date: 20190215
  Receipt Date: 20190314
  Transmission Date: 20190418
  Serious: No
  Sender: FDA-Public Use
  Company Number: US-B.I. PHARMACEUTICALS,INC./RIDGEFIELD-2019-BI-005995

PATIENT
  Sex: Male

DRUGS (1)
  1. PRADAXA [Suspect]
     Active Substance: DABIGATRAN ETEXILATE MESYLATE
     Indication: PRODUCT USED FOR UNKNOWN INDICATION
     Dosage: TWICE A DAY; FORM STRENGTH: 150 MG; FORMULATION: CAPSULE ACTION TAKEN WITH PRODUCT: DOSE NOT CHANGED
     Route: 048
     Dates: start: 20151105

REACTIONS (1)
  - Back pain [Not Recovered/Not Resolved]
